FAERS Safety Report 26093271 (Version 1)
Quarter: 2025Q4

REPORT INFORMATION
  Report Type: Spontaneous
  Country: US (occurrence: US)
  Receive Date: 20251126
  Receipt Date: 20251126
  Transmission Date: 20260118
  Serious: No
  Sender: SANOFI AVENTIS
  Company Number: US-SA-2025SA351562

PATIENT
  Age: 61 Year
  Sex: Male

DRUGS (1)
  1. DUPIXENT [Suspect]
     Active Substance: DUPILUMAB
     Dosage: 300 MG, QOW
     Route: 058

REACTIONS (7)
  - Swelling [Unknown]
  - Dry throat [Unknown]
  - Dry mouth [Unknown]
  - Throat irritation [Unknown]
  - Stomatitis [Unknown]
  - Pruritus [Not Recovered/Not Resolved]
  - Dry eye [Unknown]
